FAERS Safety Report 5963124-3 (Version None)
Quarter: 2008Q4

REPORT INFORMATION
  Report Type: 
  Country: None (occurrence: None)
  Receive Date: 20081119
  Receipt Date: 20081008
  Transmission Date: 20090506
  Serious: No
  Sender: FDA-Public Use
  Company Number: WAES 0810USA01679

PATIENT
  Age: 40 Year
  Sex: Female

DRUGS (11)
  1. JANUVIA [Suspect]
     Indication: DIABETES MELLITUS
     Dosage: 100 MG/DAILY/PO
     Route: 048
     Dates: start: 20070101
  2. ACTOS [Concomitant]
  3. CYMBALTA [Concomitant]
  4. LIPITOR [Concomitant]
  5. LYRICA [Concomitant]
  6. PRINIVIL [Concomitant]
  7. ALBUTEROL [Concomitant]
  8. CLONAZEPAM [Concomitant]
  9. METFORMIN HCL [Concomitant]
  10. NAPROXEN [Concomitant]
  11. TRAMADOL HYDROCHLORIDE [Concomitant]

REACTIONS (3)
  - EYE IRRITATION [None]
  - MYODESOPSIA [None]
  - VISION BLURRED [None]
